FAERS Safety Report 4937391-9 (Version None)
Quarter: 2006Q1

REPORT INFORMATION
  Report Type: 
  Country: None (occurrence: None)
  Receive Date: 20060302
  Receipt Date: 20060207
  Transmission Date: 20060701
  Serious: Yes (Death, Other)
  Sender: FDA-Public Use
  Company Number: GB200601000315

PATIENT
  Age: 45 Year
  Sex: Female

DRUGS (1)
  1. SOMATROPIN (SOMATROPIN) [Suspect]

REACTIONS (3)
  - ACUTE PULMONARY OEDEMA [None]
  - RECURRENT CANCER [None]
  - TACHYARRHYTHMIA [None]
